FAERS Safety Report 9675497 (Version 3)
Quarter: 2014Q3

REPORT INFORMATION
  Report Type: Spontaneous
  Country: US (occurrence: US)
  Receive Date: 20131107
  Receipt Date: 20140818
  Transmission Date: 20150326
  Serious: Yes (Hospitalization)
  Sender: FDA-Public Use
  Company Number: US-BAYER-2013-132607

PATIENT
  Age: 27 Year
  Sex: Female

DRUGS (8)
  1. ROCEPHIN [Concomitant]
     Active Substance: CEFTRIAXONE SODIUM
     Route: 030
  2. ZOFRAN [Concomitant]
     Active Substance: ONDANSETRON HYDROCHLORIDE
  3. DOXYCYCLINE. [Concomitant]
     Active Substance: DOXYCYCLINE
  4. FLAGYL [Concomitant]
     Active Substance: METRONIDAZOLE\METRONIDAZOLE HYDROCHLORIDE
  5. METRONIDAZOLE. [Concomitant]
     Active Substance: METRONIDAZOLE
     Indication: BACTERIAL VAGINOSIS
  6. DIFLUCAN [Concomitant]
     Active Substance: FLUCONAZOLE
  7. MIRENA [Suspect]
     Active Substance: LEVONORGESTREL
     Indication: CONTRACEPTION
     Dosage: 20 MCG/24HR, CONT
     Route: 015
     Dates: start: 20111122, end: 20120615
  8. MIRENA [Suspect]
     Active Substance: LEVONORGESTREL
     Indication: MENORRHAGIA

REACTIONS (15)
  - Device difficult to use [None]
  - Uterine perforation [None]
  - Nausea [None]
  - Headache [None]
  - Antisocial behaviour [None]
  - Emotional distress [None]
  - Loss of consciousness [None]
  - Depression [None]
  - Device dislocation [None]
  - Loss of libido [None]
  - Injury [None]
  - Pain [None]
  - Anxiety [None]
  - Infection [None]
  - Device issue [None]

NARRATIVE: CASE EVENT DATE: 201203
